FAERS Safety Report 15307410 (Version 1)
Quarter: 2018Q3

REPORT INFORMATION
  Report Type: Spontaneous
  Country: BR (occurrence: BR)
  Receive Date: 20180822
  Receipt Date: 20180822
  Transmission Date: 20181010
  Serious: Yes (Death)
  Sender: FDA-Public Use
  Company Number: BR-NAPPMUNDI-GBR-2018-0058619

PATIENT
  Age: 78 Year
  Sex: Female

DRUGS (1)
  1. RESTIVA [Suspect]
     Active Substance: BUPRENORPHINE
     Indication: PAIN
     Dosage: 20MG STRENGTH
     Route: 062
     Dates: start: 20170701

REACTIONS (1)
  - Death [Fatal]
